FAERS Safety Report 6636499-X (Version None)
Quarter: 2010Q1

REPORT INFORMATION
  Report Type: 
  Country: None (occurrence: None)
  Receive Date: 20100310
  Receipt Date: 20100225
  Transmission Date: 20100710
  Serious: Yes (Other)
  Sender: FDA-Public Use
  Company Number: 1000011727

PATIENT
  Age: 74 Year
  Sex: Female
  Weight: 39.4 kg

DRUGS (5)
  1. CARBAMAZEPINE [Suspect]
     Indication: PARAESTHESIA
  2. MEXILETINE [Suspect]
     Indication: PARAESTHESIA
  3. GEFITINIB [Suspect]
     Indication: ADENOCARCINOMA
  4. CARBOPLATIN [Concomitant]
  5. PACLITAXEL [Concomitant]

REACTIONS (22)
  - ALANINE AMINOTRANSFERASE INCREASED [None]
  - ASCITES [None]
  - ASPARTATE AMINOTRANSFERASE INCREASED [None]
  - BLOOD ALKALINE PHOSPHATASE INCREASED [None]
  - BLOOD CREATININE DECREASED [None]
  - BLOOD LACTATE DEHYDROGENASE INCREASED [None]
  - BLOOD UREA DECREASED [None]
  - CRYPTOSPORIDIOSIS INFECTION [None]
  - DIARRHOEA [None]
  - DRUG RASH WITH EOSINOPHILIA AND SYSTEMIC SYMPTOMS [None]
  - GAMMA-GLUTAMYLTRANSFERASE INCREASED [None]
  - HYPERKERATOSIS [None]
  - HYPOPHAGIA [None]
  - HYPOXIA [None]
  - LARGE INTESTINAL ULCER [None]
  - LIVER DISORDER [None]
  - METASTASES TO LIVER [None]
  - OEDEMA PERIPHERAL [None]
  - PERFORMANCE STATUS DECREASED [None]
  - PNEUMOCYSTIS JIROVECI PNEUMONIA [None]
  - PNEUMONIA CYTOMEGALOVIRAL [None]
  - PYREXIA [None]
